FAERS Safety Report 16515900 (Version 2)
Quarter: 2019Q3

REPORT INFORMATION
  Report Type: Spontaneous
  Country: US (occurrence: US)
  Receive Date: 20190702
  Receipt Date: 20190903
  Transmission Date: 20191004
  Serious: No
  Sender: FDA-Public Use
  Company Number: US-PFIZER INC-2019277424

PATIENT
  Age: 74 Year
  Sex: Male
  Weight: 86.18 kg

DRUGS (2)
  1. GABAPENTIN. [Suspect]
     Active Substance: GABAPENTIN
     Indication: PAIN IN EXTREMITY
     Dosage: 600 MG, 1X/DAY (300MG 2 CAPSULES AT MOUTH AT BEDTIME)
     Route: 048
  2. GABAPENTIN. [Suspect]
     Active Substance: GABAPENTIN
     Indication: HYPOAESTHESIA

REACTIONS (3)
  - Body height decreased [Unknown]
  - Product use in unapproved indication [Unknown]
  - Off label use [Unknown]
